FAERS Safety Report 4526686-9 (Version None)
Quarter: 2004Q4

REPORT INFORMATION
  Report Type: 
  Country: None (occurrence: None)
  Receive Date: 20041213
  Receipt Date: 20041129
  Transmission Date: 20050328
  Serious: Yes (Other)
  Sender: FDA-Public Use
  Company Number: 2004102739

PATIENT
  Age: 69 Year
  Sex: Female
  Weight: 74.3899 kg

DRUGS (13)
  1. CELEBREX [Suspect]
     Indication: ILL-DEFINED DISORDER
     Dates: start: 20000101
  2. LIPITOR [Suspect]
     Indication: BLOOD CHOLESTEROL
     Dates: end: 20040901
  3. LOSARTAN POTASSIUM [Concomitant]
  4. FOLIC ACID [Concomitant]
  5. ACETYL SALICYLIC ACID USP BAT [Concomitant]
  6. ESCITALOPRAM (ESCITALOPRAM) [Concomitant]
  7. DILTIAZEM HYDROCHLORIDE [Concomitant]
  8. CYANOCOBALAMIN (CYANOCOBALAMIN) [Concomitant]
  9. TOCOPHEROL CONCENTRATE CAP [Concomitant]
  10. FUROSEMIDE [Concomitant]
  11. OMEPRAZOLE [Concomitant]
  12. CLOPIDOGREL BISULFATE [Concomitant]
  13. ISOSORBIDE (ISOSORBIDE) [Concomitant]

REACTIONS (2)
  - AMNESIA [None]
  - MYOCARDIAL INFARCTION [None]
